FAERS Safety Report 4666650-2 (Version None)
Quarter: 2005Q2

REPORT INFORMATION
  Report Type: 
  Country: None (occurrence: None)
  Receive Date: 20050518
  Receipt Date: 20050502
  Transmission Date: 20051028
  Serious: Yes (Hospitalization)
  Sender: FDA-Public Use
  Company Number: 2005000827

PATIENT
  Age: 77 Year
  Sex: Female

DRUGS (1)
  1. TARCEVA [Suspect]
     Indication: NON-SMALL CELL LUNG CANCER
     Dosage: 150 MG (QD), ORAL
     Route: 048
     Dates: start: 20050401, end: 20050414

REACTIONS (8)
  - CONFUSIONAL STATE [None]
  - CONVULSION [None]
  - DISSEMINATED INTRAVASCULAR COAGULATION [None]
  - ESCHERICHIA SEPSIS [None]
  - GRAM STAIN POSITIVE [None]
  - METASTASES TO CENTRAL NERVOUS SYSTEM [None]
  - RASH [None]
  - STAPHYLOCOCCAL INFECTION [None]
